FAERS Safety Report 4842775-3 (Version None)
Quarter: 2005Q4

REPORT INFORMATION
  Report Type: 
  Country: None (occurrence: None)
  Receive Date: 20051128
  Receipt Date: 20051111
  Transmission Date: 20060501
  Serious: Yes (Death)
  Sender: FDA-Public Use
  Company Number: CLOF-10151

PATIENT
  Age: 76 Year
  Sex: Female

DRUGS (20)
  1. CLOFARABINE [Suspect]
     Indication: ACUTE MYELOID LEUKAEMIA
     Dosage: 30 MG QD X 5; IV
     Route: 042
     Dates: start: 20050427, end: 20050501
  2. CYTARABINE [Suspect]
     Indication: ACUTE MYELOID LEUKAEMIA
     Dosage: 37 MG QD; SC
     Route: 058
     Dates: start: 20050427, end: 20050510
  3. MERREM [Concomitant]
  4. VORICONAZOLE [Concomitant]
  5. GATIFLOXACIN [Concomitant]
  6. CYCLOPENTOLATE HCL [Concomitant]
  7. DOCUSATE [Concomitant]
  8. SENNA [Concomitant]
  9. PREVACID [Concomitant]
  10. METOPROLOL [Concomitant]
  11. VERSED [Concomitant]
  12. NYSTATIN [Concomitant]
  13. HYDROMORPHONE [Concomitant]
  14. KC1 [Concomitant]
  15. HYDROCORTISONE [Concomitant]
  16. BENADRYL [Concomitant]
  17. AMBISOME [Concomitant]
  18. ALBUMIN (HUMAN) [Concomitant]
  19. LASIX [Concomitant]
  20. MAGNESIUM SULFATE [Concomitant]

REACTIONS (3)
  - CEREBRAL FUNGAL INFECTION [None]
  - FUSARIUM INFECTION [None]
  - PNEUMONIA FUNGAL [None]
